FAERS Safety Report 21202200 (Version 1)
Quarter: 2022Q3

REPORT INFORMATION
  Report Type: Spontaneous
  Country: ES (occurrence: ES)
  Receive Date: 20220811
  Receipt Date: 20220811
  Transmission Date: 20221026
  Serious: Yes (Other)
  Sender: FDA-Public Use
  Company Number: ES-ZAMBON SWITZERLAND LTD.-2022ES000024

PATIENT

DRUGS (1)
  1. FOSFOMYCIN TROMETHAMINE [Suspect]
     Active Substance: FOSFOMYCIN TROMETHAMINE
     Indication: Product used for unknown indication
     Dosage: UNK

REACTIONS (3)
  - Tubulointerstitial nephritis [Unknown]
  - Pyrexia [Unknown]
  - Malaise [Unknown]
